FAERS Safety Report 11009073 (Version 1)
Quarter: 2015Q2

REPORT INFORMATION
  Report Type: Spontaneous
  Country: MC (occurrence: MC)
  Receive Date: 20150410
  Receipt Date: 20150410
  Transmission Date: 20150821
  Serious: Yes (Death, Other)
  Sender: FDA-Public Use
  Company Number: MC-CELGENE-MCO-2015036188

PATIENT
  Age: 77 Year

DRUGS (1)
  1. AZACITIDINE INJECTABLE [Suspect]
     Active Substance: AZACITIDINE
     Indication: MYELODYSPLASTIC SYNDROME
     Route: 065

REACTIONS (9)
  - Rectal haemorrhage [Unknown]
  - Febrile bone marrow aplasia [Unknown]
  - Hypernatraemia [Unknown]
  - Death [Fatal]
  - Cardiac failure [Unknown]
  - Pancytopenia [Unknown]
  - Lung infection [Unknown]
  - Septic shock [Unknown]
  - Renal failure [Unknown]
